FAERS Safety Report 7786170-6 (Version None)
Quarter: 2011Q3

REPORT INFORMATION
  Report Type: 
  Country: None (occurrence: None)
  Receive Date: 20110929
  Receipt Date: 20110914
  Transmission Date: 20111222
  Serious: No
  Sender: FDA-Public Use
  Company Number: US-B.I. PHARMACEUTICALS,INC./RIDGEFIELD-2011-BP-20148BP

PATIENT
  Sex: Female

DRUGS (5)
  1. PRADAXA [Suspect]
     Indication: ATRIAL FIBRILLATION
     Dosage: 300 MG
     Route: 048
     Dates: start: 20110601
  2. METOPROLOL TARTRATE [Concomitant]
     Indication: ATRIAL FIBRILLATION
     Dosage: 50 MG
     Route: 048
     Dates: start: 20100101
  3. SIMVASTATIN [Concomitant]
     Indication: BLOOD CHOLESTEROL INCREASED
     Dosage: 25 MG
     Route: 048
     Dates: start: 20110101
  4. ALENDRONATE SODIUM [Concomitant]
     Indication: OSTEOPOROSIS
     Route: 048
     Dates: start: 20110101
  5. RYTHMOL SR [Concomitant]
     Indication: ATRIAL FIBRILLATION
     Dosage: 650 MG
     Route: 048
     Dates: start: 20110801

REACTIONS (7)
  - PAIN [None]
  - THROAT IRRITATION [None]
  - CARDIOVERSION [None]
  - EYE SWELLING [None]
  - DYSGEUSIA [None]
  - LIP SWELLING [None]
  - PAROSMIA [None]
